FAERS Safety Report 13451935 (Version 1)
Quarter: 2017Q2

REPORT INFORMATION
  Report Type: Spontaneous
  Country: JP (occurrence: JP)
  Receive Date: 20170418
  Receipt Date: 20170418
  Transmission Date: 20170830
  Serious: Yes (Other)
  Sender: FDA-Public Use
  Company Number: PHJP2017JP012633

PATIENT
  Age: 68 Year

DRUGS (2)
  1. ZOLEDRONATE [Suspect]
     Active Substance: ZOLEDRONIC ACID
     Indication: METASTASES TO BONE
     Route: 065
  2. DENOSUMAB [Suspect]
     Active Substance: DENOSUMAB
     Indication: METASTASES TO BONE
     Route: 065

REACTIONS (6)
  - Sinusitis [Unknown]
  - Osteosclerosis [Unknown]
  - Osteonecrosis of jaw [Unknown]
  - Exposed bone in jaw [Unknown]
  - Osteolysis [Unknown]
  - Dental fistula [Unknown]
